FAERS Safety Report 4993433-6 (Version None)
Quarter: 2006Q2

REPORT INFORMATION
  Report Type: 
  Country: None (occurrence: None)
  Receive Date: 20060503
  Receipt Date: 20060503
  Transmission Date: 20061013
  Serious: Yes (Hospitalization)
  Sender: FDA-Public Use
  Company Number: None

PATIENT
  Age: 27 Year
  Sex: Male

DRUGS (2)
  1. VELCADE [Suspect]
     Indication: DIFFUSE LARGE B-CELL LYMPHOMA
     Dosage: 1.3 MG/M2 IV DRIP DAY 1 + 4 OF 21
     Route: 041
     Dates: start: 20050527, end: 20051031
  2. R-CHOP [Suspect]
     Indication: DIFFUSE LARGE B-CELL LYMPHOMA
     Dosage: DAY 1 + 4 OF 21 DAY
     Dates: start: 20050527, end: 20051028

REACTIONS (4)
  - FLUID INTAKE REDUCED [None]
  - MOUTH ULCERATION [None]
  - NEUTROPENIA [None]
  - PYREXIA [None]
